FAERS Safety Report 4895971-3 (Version None)
Quarter: 2005Q4

REPORT INFORMATION
  Report Type: 
  Country: None (occurrence: None)
  Receive Date: 20051220
  Receipt Date: 20050610
  Transmission Date: 20060501
  Serious: Yes (Hospitalization)
  Sender: FDA-Public Use
  Company Number: US116726

PATIENT
  Age: 62 Year
  Sex: Male

DRUGS (5)
  1. ENBREL [Suspect]
     Indication: PSORIATIC ARTHROPATHY
     Dosage: 25 MG, 2 IN 1 WEEKS, SC ; 50 MG, 1 IN 1 WEEKS, SC
     Route: 058
     Dates: start: 20041130, end: 20050101
  2. ENBREL [Suspect]
     Indication: PSORIATIC ARTHROPATHY
     Dosage: 25 MG, 2 IN 1 WEEKS, SC ; 50 MG, 1 IN 1 WEEKS, SC
     Route: 058
     Dates: start: 20050101, end: 20050101
  3. LOSARTAN POTASSIUM [Concomitant]
  4. SPIRONOLACTONE [Concomitant]
  5. ACETAMINOPHEN [Concomitant]

REACTIONS (1)
  - CONVULSION [None]
